FAERS Safety Report 15575087 (Version 2)
Quarter: 2018Q4

REPORT INFORMATION
  Report Type: Spontaneous
  Country: US (occurrence: US)
  Receive Date: 20181101
  Receipt Date: 20181218
  Transmission Date: 20190205
  Serious: No
  Sender: FDA-Public Use
  Company Number: US-EX USA HOLDINGS-EXHL20180609

PATIENT
  Age: 17 Year
  Sex: Female
  Weight: 57.66 kg

DRUGS (2)
  1. TRI-LO- ESTARYLLA [Suspect]
     Active Substance: ETHINYL ESTRADIOL\NORGESTIMATE
     Dosage: ONE
     Route: 048
     Dates: start: 20180628, end: 20180924
  2. TRI-LO- ESTARYLLA [Suspect]
     Active Substance: ETHINYL ESTRADIOL\NORGESTIMATE
     Indication: MIGRAINE
     Dosage: ONE
     Route: 048
     Dates: start: 20181014, end: 20181017

REACTIONS (11)
  - Paranoia [Recovered/Resolved]
  - Palpitations [Recovered/Resolved]
  - Decreased appetite [Recovered/Resolved]
  - Anxiety [Recovered/Resolved]
  - Depression [Recovered/Resolved]
  - Mental disorder [Recovered/Resolved]
  - Product use in unapproved indication [None]
  - Insomnia [Recovered/Resolved]
  - Tri-iodothyronine increased [Recovered/Resolved]
  - Fatigue [Recovered/Resolved]
  - Hypersomnia [Recovered/Resolved]

NARRATIVE: CASE EVENT DATE: 20181014
